FAERS Safety Report 9479511 (Version 4)
Quarter: 2013Q3

REPORT INFORMATION
  Report Type: Report from Study
  Country: AU (occurrence: AU)
  Receive Date: 20130827
  Receipt Date: 20130910
  Transmission Date: 20140515
  Serious: Yes (Life-Threatening, Hospitalization)
  Sender: FDA-Public Use
  Company Number: AU-ROCHE-1266997

PATIENT
  Age: 41 Year
  Sex: Female
  Weight: 59 kg

DRUGS (15)
  1. TRASTUZUMAB [Suspect]
     Indication: BREAST CANCER METASTATIC
     Route: 065
     Dates: start: 201004, end: 201106
  2. TRASTUZUMAB [Suspect]
     Route: 065
     Dates: start: 201212, end: 201301
  3. CAPECITABINE [Suspect]
     Indication: BREAST CANCER METASTATIC
     Route: 065
     Dates: start: 201107, end: 201211
  4. TRASTUZUMAB EMTANSINE [Suspect]
     Indication: BREAST CANCER METASTATIC
     Route: 065
     Dates: start: 20130719
  5. 5-FU [Concomitant]
  6. EPIRUBICIN [Concomitant]
  7. CYCLOPHOSPHAMIDE [Concomitant]
  8. TAXOTERE [Concomitant]
  9. ABRAXANE [Concomitant]
     Route: 065
     Dates: start: 201004, end: 201010
  10. TAXOL [Concomitant]
     Route: 065
     Dates: start: 201101, end: 201106
  11. TAXOL [Concomitant]
     Route: 065
     Dates: start: 201212, end: 201301
  12. TYKERB [Concomitant]
     Route: 065
     Dates: start: 201107, end: 201211
  13. CARBOPLATIN [Concomitant]
     Route: 065
     Dates: start: 201211, end: 201212
  14. DOXORUBICIN [Concomitant]
     Dosage: LIPOSOMAL DOXORUBICIN (CAELYX)
     Route: 065
     Dates: start: 201304, end: 201305
  15. VINORELBINE [Concomitant]

REACTIONS (3)
  - Disease progression [Unknown]
  - Depression [Recovering/Resolving]
  - Suicidal ideation [Recovering/Resolving]
